FAERS Safety Report 4988469-5 (Version None)
Quarter: 2006Q2

REPORT INFORMATION
  Report Type: 
  Country: None (occurrence: None)
  Receive Date: 20060426
  Receipt Date: 20060418
  Transmission Date: 20061013
  Serious: Yes (Hospitalization, Other)
  Sender: FDA-Public Use
  Company Number: 2006026314

PATIENT
  Age: 63 Year
  Sex: Male

DRUGS (10)
  1. NEURONTIN [Suspect]
     Indication: NEUROPATHY
     Dosage: 800 MG (400 MG, 2 IN 1 D),
     Dates: start: 20050601, end: 20050701
  2. FUROSEMIDE [Concomitant]
  3. LISINOPRIL [Concomitant]
  4. PRAVACHOL [Concomitant]
  5. METOPROLOL SUCCINATE [Concomitant]
  6. WARFARIN SODIUM [Concomitant]
  7. DILTIAZEM [Concomitant]
  8. ZYRTEC [Concomitant]
  9. NOVOLIN N [Concomitant]
  10. OXYCODONE (OXYCODONE) [Concomitant]

REACTIONS (3)
  - MUSCLE TWITCHING [None]
  - RENAL CELL CARCINOMA STAGE UNSPECIFIED [None]
  - SWELLING [None]
